FAERS Safety Report 18065412 (Version 2)
Quarter: 2020Q3

REPORT INFORMATION
  Report Type: Spontaneous
  Country: US (occurrence: US)
  Receive Date: 20200724
  Receipt Date: 20200818
  Transmission Date: 20201103
  Serious: Yes (Other)
  Sender: FDA-Public Use
  Company Number: US-BAUSCH-BL-2020-020590

PATIENT
  Age: 71 Year
  Sex: Female
  Weight: 70.37 kg

DRUGS (4)
  1. AMLODIPINE [Concomitant]
     Active Substance: AMLODIPINE BESYLATE
     Indication: PRODUCT USED FOR UNKNOWN INDICATION
  2. TOBRAMYCIN AND DEXAMETHASONE [Suspect]
     Active Substance: DEXAMETHASONE\TOBRAMYCIN
     Indication: EAR INFECTION
     Dosage: STARTED COUPLE OF YEARS AGO, JUST USED COUPLE OF DROPS
     Route: 001
     Dates: start: 2019, end: 202006
  3. METOPROLOL. [Concomitant]
     Active Substance: METOPROLOL
     Indication: PRODUCT USED FOR UNKNOWN INDICATION
  4. TOBRAMYCIN AND DEXAMETHASONE [Suspect]
     Active Substance: DEXAMETHASONE\TOBRAMYCIN
     Indication: EYE DISORDER
     Dosage: 3 TO 4 WEEKS PRIOR, ONE DROP IN EACH EYE
     Route: 047
     Dates: start: 202006, end: 2020

REACTIONS (6)
  - Iris discolouration [Unknown]
  - Incorrect route of product administration [Unknown]
  - Vitreous disorder [Unknown]
  - Drug effective for unapproved indication [Unknown]
  - Maculopathy [Unknown]
  - Disease recurrence [Unknown]

NARRATIVE: CASE EVENT DATE: 2020
